FAERS Safety Report 14163228 (Version 2)
Quarter: 2017Q4

REPORT INFORMATION
  Report Type: Spontaneous
  Country: DE (occurrence: DE)
  Receive Date: 20171106
  Receipt Date: 20171221
  Transmission Date: 20180321
  Serious: Yes (Life-Threatening, Hospitalization, Other)
  Sender: FDA-Public Use
  Company Number: DE-MYLANLABS-2017M1068713

PATIENT
  Age: 74 Year
  Sex: Male

DRUGS (2)
  1. POTASSIUM CHLORIDE. [Suspect]
     Active Substance: POTASSIUM CHLORIDE
     Indication: HYPOKALAEMIA
     Dosage: 7.45% AT FLOW RATE OF 10ML/HOUR
     Route: 008
  2. ROPIVACAINE [Concomitant]
     Active Substance: ROPIVACAINE
     Indication: EPIDURAL ANALGESIA
     Dosage: FOUR 0.2% AT 4ML/HOUR
     Route: 008

REACTIONS (11)
  - Incorrect route of drug administration [Unknown]
  - Drug administered in wrong device [Unknown]
  - Loss of consciousness [Recovered/Resolved]
  - Spinal cord paralysis [Recovered/Resolved]
  - Neuromuscular blockade [Recovered/Resolved]
  - Paralysis [Recovered/Resolved]
  - Stress cardiomyopathy [Recovering/Resolving]
  - Lung consolidation [Unknown]
  - Respiratory depression [Recovering/Resolving]
  - Pain [Unknown]
  - Pruritus [Unknown]
